FAERS Safety Report 9353322 (Version 1)
Quarter: 2013Q2

REPORT INFORMATION
  Report Type: Spontaneous
  Country: US (occurrence: None)
  Receive Date: 20130617
  Receipt Date: 20130617
  Transmission Date: 20140414
  Serious: Yes (Hospitalization)
  Sender: FDA-Public Use
  Company Number: None

PATIENT
  Age: 39 Year
  Sex: Male
  Weight: 86.2 kg

DRUGS (1)
  1. PRAZOSIN [Suspect]
     Indication: NIGHTMARE
     Dosage: 120 MG ONCE PO
     Route: 048
     Dates: start: 20130524, end: 20130524

REACTIONS (8)
  - Overdose [None]
  - Suicide attempt [None]
  - Dizziness [None]
  - Chest discomfort [None]
  - Nausea [None]
  - Angina pectoris [None]
  - Dyspnoea [None]
  - Vomiting [None]
